FAERS Safety Report 5326897-9 (Version None)
Quarter: 2007Q2

REPORT INFORMATION
  Report Type: 
  Country: None (occurrence: None)
  Receive Date: 20070511
  Receipt Date: 20070507
  Transmission Date: 20071010
  Serious: Yes (Life-Threatening, Hospitalization, Other)
  Sender: FDA-Public Use
  Company Number: 2007SP000438

PATIENT
  Age: 14 Year
  Sex: Male

DRUGS (6)
  1. TEMODAL [Suspect]
     Indication: GLIOMA
     Dosage: 85 MG/M2;QD;PO
     Route: 048
     Dates: start: 20030224, end: 20040516
  2. DESMOPRESSIN [Concomitant]
  3. PHENYTOIN [Concomitant]
  4. LEVOTHYROXINE SODIUM [Concomitant]
  5. HYDROCORTISONE [Concomitant]
  6. FLUVOXAMINE MALEATE [Concomitant]

REACTIONS (2)
  - HAEMORRHAGE INTRACRANIAL [None]
  - LEIOMYOSARCOMA [None]
